FAERS Safety Report 8006138-4 (Version None)
Quarter: 2011Q4

REPORT INFORMATION
  Report Type: 
  Country: None (occurrence: None)
  Receive Date: 20111226
  Receipt Date: 20111213
  Transmission Date: 20120403
  Serious: Yes (Hospitalization, Disabling, Other)
  Sender: FDA-Public Use
  Company Number: FR-ELI_LILLY_AND_COMPANY-FR201101001370

PATIENT
  Sex: Male

DRUGS (5)
  1. ZOLOFT [Concomitant]
     Indication: BIPOLAR I DISORDER
     Dosage: UNK
     Route: 048
     Dates: start: 20030701, end: 20100301
  2. ZYPREXA [Suspect]
     Indication: BIPOLAR I DISORDER
     Dosage: UNK
     Route: 048
     Dates: start: 20030701, end: 20100301
  3. DEPAKOTE [Concomitant]
     Indication: BIPOLAR I DISORDER
     Dosage: UNK
     Route: 048
     Dates: start: 20030701, end: 20100301
  4. OXAZEPAM [Concomitant]
     Indication: BIPOLAR I DISORDER
     Dosage: UNK
     Route: 048
     Dates: start: 20030701, end: 20100301
  5. TERCIAN [Concomitant]
     Indication: BIPOLAR I DISORDER
     Dosage: UNK
     Route: 048
     Dates: start: 20030701, end: 20100301

REACTIONS (5)
  - MENTAL DISORDER [None]
  - DISABILITY [None]
  - SKIN STRIAE [None]
  - SUICIDE ATTEMPT [None]
  - WEIGHT INCREASED [None]
